FAERS Safety Report 19365170 (Version 1)
Quarter: 2021Q2

REPORT INFORMATION
  Report Type: Spontaneous
  Country: US (occurrence: US)
  Receive Date: 20210603
  Receipt Date: 20210603
  Transmission Date: 20210717
  Serious: No
  Sender: FDA-Public Use
  Company Number: None

PATIENT
  Age: 67 Year
  Sex: Male

DRUGS (1)
  1. APIXABAN (APIXABAN 5MG TAB) [Suspect]
     Active Substance: APIXABAN
     Indication: ATRIAL FIBRILLATION
     Route: 048
     Dates: start: 20190131, end: 20210425

REACTIONS (9)
  - Pharyngeal stenosis [None]
  - Oesophageal stenosis [None]
  - Gastrointestinal ulcer [None]
  - Gastric haemorrhage [None]
  - Abdominal pain [None]
  - Anaemia [None]
  - Duodenitis [None]
  - Gastritis [None]
  - Gastric ulcer [None]

NARRATIVE: CASE EVENT DATE: 20210425
